FAERS Safety Report 6641399-5 (Version None)
Quarter: 2010Q1

REPORT INFORMATION
  Report Type: 
  Country: None (occurrence: None)
  Receive Date: 20100318
  Receipt Date: 20100309
  Transmission Date: 20100710
  Serious: Yes (Disabling)
  Sender: FDA-Public Use
  Company Number: GB-ROCHE-689820

PATIENT
  Age: 20 Year

DRUGS (5)
  1. TAMIFLU [Suspect]
     Indication: DRUG USE FOR UNKNOWN INDICATION
     Route: 065
     Dates: start: 20091001
  2. CILEST [Concomitant]
  3. PROCHLORPERAZINE MALEATE [Concomitant]
  4. PROCHLORPERAZINE [Concomitant]
  5. TEMAZEPAM [Concomitant]

REACTIONS (4)
  - BALANCE DISORDER [None]
  - DISTURBANCE IN ATTENTION [None]
  - PARAESTHESIA [None]
  - VERTIGO [None]
